FAERS Safety Report 7611585-6 (Version None)
Quarter: 2011Q3

REPORT INFORMATION
  Report Type: 
  Country: None (occurrence: None)
  Receive Date: 20110715
  Receipt Date: 20110707
  Transmission Date: 20111222
  Serious: Yes (Hospitalization)
  Sender: FDA-Public Use
  Company Number: FR-GLAXOSMITHKLINE-B0601606A

PATIENT
  Sex: Female
  Weight: 64.6 kg

DRUGS (16)
  1. ALKERAN [Suspect]
     Indication: MULTIPLE MYELOMA
     Dosage: 18MG PER DAY
     Dates: start: 20090924
  2. DESLORATADINE [Concomitant]
     Indication: HYPERSENSITIVITY
     Dosage: 5MG PER DAY
     Route: 048
  3. ARIXTRA [Concomitant]
     Indication: THROMBOSIS
     Dosage: 7.5MG PER DAY
     Route: 048
  4. ABUFENE [Concomitant]
     Indication: HYPERSENSITIVITY
     Dosage: 800MG TWICE PER DAY
     Route: 048
  5. BEFIZAL [Concomitant]
     Indication: DYSLIPIDAEMIA
     Dosage: 400MG PER DAY
     Route: 048
  6. ACETAMINOPHEN [Concomitant]
     Indication: DYSLIPIDAEMIA
     Dosage: 4G PER DAY
     Route: 048
  7. PREDNISONE [Suspect]
     Indication: MULTIPLE MYELOMA
     Dosage: 140MG PER DAY
     Dates: start: 20090924
  8. NEXIUM [Concomitant]
     Indication: GLAUCOMA
     Dosage: 20MG PER DAY
     Route: 048
  9. OXYCODONE HCL [Concomitant]
     Dosage: 10MG PER DAY
  10. TIORFAN [Concomitant]
  11. THALIDOMIDE [Suspect]
     Indication: MULTIPLE MYELOMA
     Dosage: 200MG PER DAY
     Route: 048
     Dates: start: 20090924
  12. UNKNOWN DRUG [Concomitant]
     Indication: HYPERTENSION
     Route: 048
  13. OXYCONTIN [Concomitant]
     Indication: BONE PAIN
     Dosage: 20MG PER DAY
     Route: 048
     Dates: start: 20090602
  14. PACKED RED CELLS [Concomitant]
     Indication: ANAEMIA
     Route: 042
  15. CIPROFLOXACIN [Concomitant]
  16. ULTRA-LEVURE [Concomitant]

REACTIONS (13)
  - DIARRHOEA [None]
  - VOMITING [None]
  - SYSTOLIC HYPERTENSION [None]
  - NEUTROPENIA [None]
  - ABDOMINAL PAIN [None]
  - MITRAL VALVE INCOMPETENCE [None]
  - MALNUTRITION [None]
  - HYPOCALCAEMIA [None]
  - NAUSEA [None]
  - WEIGHT DECREASED [None]
  - ASTHENIA [None]
  - HYPOKALAEMIA [None]
  - DEHYDRATION [None]
